FAERS Safety Report 13983589 (Version 2)
Quarter: 2017Q3

REPORT INFORMATION
  Report Type: Spontaneous
  Country: CA (occurrence: CA)
  Receive Date: 20170918
  Receipt Date: 20170922
  Transmission Date: 20171128
  Serious: Yes (Hospitalization, Other)
  Sender: FDA-Public Use
  Company Number: CA-PFIZER INC-2017394714

PATIENT
  Age: 54 Year
  Sex: Female

DRUGS (3)
  1. ALVESCO [Suspect]
     Active Substance: CICLESONIDE
     Dosage: 200 MCG, DAILY, 2 PUFFS, DAILY
     Route: 055
  2. VENTOLIN [Suspect]
     Active Substance: ALBUTEROL SULFATE
     Dosage: 2 PUFFS, 4X/DAY, AS NEEDED
     Route: 055
  3. ATIVAN [Suspect]
     Active Substance: LORAZEPAM
     Dosage: 0.25 MG, AS NEEDED
     Route: 060

REACTIONS (6)
  - Pain [Recovered/Resolved]
  - Malnutrition [Not Recovered/Not Resolved]
  - Abdominal abscess [Not Recovered/Not Resolved]
  - Pyrexia [Recovered/Resolved]
  - Chills [Recovered/Resolved]
  - Fatigue [Not Recovered/Not Resolved]
